FAERS Safety Report 10591851 (Version 2)
Quarter: 2015Q1

REPORT INFORMATION
  Report Type: Spontaneous
  Country: CO (occurrence: CO)
  Receive Date: 20141119
  Receipt Date: 20150227
  Transmission Date: 20150720
  Serious: Yes (Hospitalization, Other)
  Sender: FDA-Public Use
  Company Number: CO-AMGEN-COLSP2014088825

PATIENT
  Age: 55 Year
  Sex: Female

DRUGS (1)
  1. ENBREL [Suspect]
     Active Substance: ETANERCEPT
     Indication: PSORIATIC ARTHROPATHY
     Dosage: 50 MG, 2X/WEEK
     Route: 058
     Dates: start: 2013, end: 201412

REACTIONS (16)
  - Dyskinesia [Recovered/Resolved]
  - Brain neoplasm [Recovered/Resolved with Sequelae]
  - Haemorrhoids [Unknown]
  - Foot deformity [Not Recovered/Not Resolved]
  - Injection site pain [Not Recovered/Not Resolved]
  - Amnesia [Not Recovered/Not Resolved]
  - Finger deformity [Not Recovered/Not Resolved]
  - Vaginal prolapse [Recovering/Resolving]
  - Cerebral ischaemia [Recovered/Resolved]
  - Aphonia [Recovered/Resolved]
  - Visual field defect [Not Recovered/Not Resolved]
  - Rash generalised [Recovering/Resolving]
  - Chikungunya virus infection [Recovering/Resolving]
  - Blindness [Recovered/Resolved with Sequelae]
  - Vaginal disorder [Recovering/Resolving]
  - Pain in extremity [Not Recovered/Not Resolved]

NARRATIVE: CASE EVENT DATE: 2013
